FAERS Safety Report 14761720 (Version 1)
Quarter: 2018Q2

REPORT INFORMATION
  Report Type: Spontaneous
  Country: US (occurrence: US)
  Receive Date: 20180416
  Receipt Date: 20180416
  Transmission Date: 20180711
  Serious: No
  Sender: FDA-Public Use
  Company Number: US-BION-006409

PATIENT
  Age: 56 Year
  Sex: Female
  Weight: 86 kg

DRUGS (21)
  1. MELATONIN [Concomitant]
     Active Substance: MELATONIN
  2. RIBOFLAVIN [Concomitant]
     Active Substance: RIBOFLAVIN
  3. CYANOCOBALAMIN. [Concomitant]
     Active Substance: CYANOCOBALAMIN
  4. LASIX [Concomitant]
     Active Substance: FUROSEMIDE
  5. MAGNESIUM HYDROXIDE. [Concomitant]
     Active Substance: MAGNESIUM HYDROXIDE
  6. EXCEDRIN EXTRA STRENGTH [Concomitant]
     Active Substance: ACETAMINOPHEN\ASPIRIN\CAFFEINE
  7. DIAZEPAM. [Concomitant]
     Active Substance: DIAZEPAM
  8. ALPRAZOLAM. [Concomitant]
     Active Substance: ALPRAZOLAM
  9. CALTRATE [Concomitant]
     Active Substance: CALCIUM CARBONATE
  10. POTASSIUM [Concomitant]
     Active Substance: POTASSIUM
  11. EXCEDRIN MIGRAINE [Concomitant]
     Active Substance: ACETAMINOPHEN\ASPIRIN\CAFFEINE
  12. XANAFLAX [Concomitant]
  13. ZOMIG [Concomitant]
     Active Substance: ZOLMITRIPTAN
  14. ADDERALL [Concomitant]
     Active Substance: AMPHETAMINE ASPARTATE\AMPHETAMINE SULFATE\DEXTROAMPHETAMINE SACCHARATE\DEXTROAMPHETAMINE SULFATE
  15. PROPRANOLOL [Concomitant]
     Active Substance: PROPRANOLOL HYDROCHLORIDE
  16. LIPITOR [Concomitant]
     Active Substance: ATORVASTATIN CALCIUM
  17. ACETAZOLAMIDE. [Concomitant]
     Active Substance: ACETAZOLAMIDE
  18. TEPRA [Concomitant]
  19. ALEVE [Suspect]
     Active Substance: NAPROXEN SODIUM
     Indication: MIGRAINE
     Dosage: 1 IN THE MORNING 1 AT NIGHT AS NEEDED?PATINET ALSO RECIVED ALEVE CAPLETS 130CT WM BONUS PACK
     Route: 048
  20. COMPAZINE [Concomitant]
     Active Substance: PROCHLORPERAZINE MALEATE
  21. NEXIUM [Concomitant]
     Active Substance: ESOMEPRAZOLE MAGNESIUM

REACTIONS (6)
  - Incorrect drug administration duration [Not Recovered/Not Resolved]
  - Drug prescribing error [Not Recovered/Not Resolved]
  - Product use in unapproved indication [Not Recovered/Not Resolved]
  - Oral discomfort [Recovered/Resolved]
  - Mouth swelling [Recovered/Resolved]
  - Expired product administered [Not Recovered/Not Resolved]
